FAERS Safety Report 7897220-0 (Version None)
Quarter: 2011Q4

REPORT INFORMATION
  Report Type: 
  Country: None (occurrence: None)
  Receive Date: 20111107
  Receipt Date: 20111026
  Transmission Date: 20120403
  Serious: Yes (Hospitalization)
  Sender: FDA-Public Use
  Company Number: US-BAYER-201031251NA

PATIENT
  Sex: Female
  Weight: 57.143 kg

DRUGS (13)
  1. MORPHINE [Concomitant]
     Indication: PAIN
  2. OXYCODONE [Concomitant]
     Indication: PAIN
  3. LOVENOX [Concomitant]
     Dosage: UNK
     Route: 058
     Dates: start: 20080822
  4. CYCLOBENZAPRINE [Concomitant]
     Dosage: 10 MG, UNK
  5. YAZ [Suspect]
     Dosage: UNK
     Dates: start: 20061001
  6. COUMADIN [Concomitant]
     Dosage: 10 MG, UNK
     Dates: start: 20080822
  7. VICODIN [Concomitant]
     Indication: PAIN
     Dosage: UNK UNK, PRN
     Dates: start: 20080801
  8. COUMADIN [Concomitant]
     Dosage: 5 MG, UNK
     Dates: start: 20080820
  9. YAZ [Suspect]
     Indication: CONTRACEPTION
     Dosage: UNK UNK, UNK
     Route: 065
     Dates: start: 20070301, end: 20080601
  10. YAZ [Suspect]
     Indication: ACNE
     Dosage: UNK
     Dates: start: 20080810, end: 20080818
  11. FLEXERIL [Concomitant]
     Indication: BACK PAIN
  12. IBUPROFEN (ADVIL) [Concomitant]
  13. ALEVE [Concomitant]
     Indication: PAIN

REACTIONS (7)
  - PULMONARY EMBOLISM [None]
  - GAIT DISTURBANCE [None]
  - DEEP VEIN THROMBOSIS [None]
  - DEPRESSION [None]
  - BACK PAIN [None]
  - OEDEMA PERIPHERAL [None]
  - PAIN [None]
